FAERS Safety Report 11454685 (Version 1)
Quarter: 2015Q3

REPORT INFORMATION
  Report Type: Spontaneous
  Country: US (occurrence: US)
  Receive Date: 20150831
  Receipt Date: 20150831
  Transmission Date: 20151125
  Serious: No
  Sender: FDA-Public Use
  Company Number: US-ELI_LILLY_AND_COMPANY-US201004007571

PATIENT
  Sex: Female

DRUGS (5)
  1. CYMBALTA [Suspect]
     Active Substance: DULOXETINE HYDROCHLORIDE
     Route: 048
     Dates: start: 2009
  2. AMBIEN [Concomitant]
     Active Substance: ZOLPIDEM TARTRATE
  3. COREG [Concomitant]
     Active Substance: CARVEDILOL
  4. LEVOTHROID [Concomitant]
     Active Substance: LEVOTHYROXINE SODIUM
  5. CYMBALTA [Suspect]
     Active Substance: DULOXETINE HYDROCHLORIDE
     Indication: FIBROMYALGIA
     Dosage: 60 MG, DAILY (1/D)
     Route: 048
     Dates: start: 2008, end: 2009

REACTIONS (6)
  - Pain [Not Recovered/Not Resolved]
  - Dizziness [Not Recovered/Not Resolved]
  - Drug withdrawal syndrome [Not Recovered/Not Resolved]
  - Paraesthesia [Not Recovered/Not Resolved]
  - Energy increased [Not Recovered/Not Resolved]
  - Drug effect incomplete [Unknown]
